FAERS Safety Report 7570657-5 (Version None)
Quarter: 2011Q2

REPORT INFORMATION
  Report Type: 
  Country: None (occurrence: None)
  Receive Date: 20110624
  Receipt Date: 20110426
  Transmission Date: 20111010
  Serious: No
  Sender: FDA-Public Use
  Company Number: US-ALLERGAN-1105771US

PATIENT
  Age: 40 Year
  Sex: Female

DRUGS (3)
  1. MASCARA [Concomitant]
  2. LATISSE [Suspect]
     Indication: GROWTH OF EYELASHES
     Dosage: UNK
     Route: 061
     Dates: start: 20110412, end: 20110422
  3. EYELINER [Concomitant]

REACTIONS (2)
  - LACRIMATION INCREASED [None]
  - WRONG TECHNIQUE IN DRUG USAGE PROCESS [None]
